FAERS Safety Report 6655046-X (Version None)
Quarter: 2010Q1

REPORT INFORMATION
  Report Type: 
  Country: None (occurrence: None)
  Receive Date: 20100329
  Receipt Date: 20091218
  Transmission Date: 20100710
  Serious: Yes (Other)
  Sender: FDA-Public Use
  Company Number: US-JNJFOC-20090105098

PATIENT
  Sex: Female

DRUGS (2)
  1. LEVAQUIN [Suspect]
     Indication: UPPER RESPIRATORY TRACT INFECTION
     Route: 048
  2. SULFAMETHOXAZOLE AND TRIMETHOPRIM [Concomitant]
     Indication: DRUG USE FOR UNKNOWN INDICATION
     Dosage: 800/160
     Route: 048

REACTIONS (8)
  - HALLUCINATION [None]
  - HEADACHE [None]
  - MENTAL IMPAIRMENT [None]
  - NECK PAIN [None]
  - PARANOIA [None]
  - SECRETION DISCHARGE [None]
  - UPPER RESPIRATORY TRACT INFECTION [None]
  - VOMITING [None]
